FAERS Safety Report 8320467-6 (Version None)
Quarter: 2012Q2

REPORT INFORMATION
  Report Type: 
  Country: None (occurrence: None)
  Receive Date: 20120426
  Receipt Date: 20120426
  Transmission Date: 20120825
  Serious: Yes (Hospitalization)
  Sender: FDA-Public Use
  Company Number: None

PATIENT
  Sex: Male
  Weight: 88 kg

DRUGS (4)
  1. VINCRISTINE SULFATE [Suspect]
     Dosage: 3.28 MG
  2. CYCLOPHOSPHAMIDE [Suspect]
     Dosage: 2670 MG
  3. ETOPOSIDE [Suspect]
     Dosage: 712 MG
  4. DOXORUBICIN HYDROCHLORIDE [Suspect]
     Dosage: 142.4 MG

REACTIONS (3)
  - FEBRILE NEUTROPENIA [None]
  - DIARRHOEA [None]
  - HAEMOGLOBIN DECREASED [None]
